FAERS Safety Report 25263883 (Version 1)
Quarter: 2025Q2

REPORT INFORMATION
  Report Type: Spontaneous
  Country: GR (occurrence: GR)
  Receive Date: 20250502
  Receipt Date: 20250502
  Transmission Date: 20250716
  Serious: Yes (Other)
  Sender: BRISTOL MYERS SQUIBB
  Company Number: GR-BRISTOL-MYERS SQUIBB COMPANY-2025-063627

PATIENT
  Age: 79 Year
  Sex: Male

DRUGS (5)
  1. NIVOLUMAB [Suspect]
     Active Substance: NIVOLUMAB
     Indication: Bladder cancer
     Dates: start: 201712
  2. NIVOLUMAB [Suspect]
     Active Substance: NIVOLUMAB
     Dates: start: 202105
  3. NIVOLUMAB [Suspect]
     Active Substance: NIVOLUMAB
  4. NIVOLUMAB [Suspect]
     Active Substance: NIVOLUMAB
     Dates: start: 202201
  5. NIVOLUMAB [Suspect]
     Active Substance: NIVOLUMAB

REACTIONS (1)
  - Pemphigoid [Recovered/Resolved]

NARRATIVE: CASE EVENT DATE: 20210101
